FAERS Safety Report 12655913 (Version 3)
Quarter: 2016Q3

REPORT INFORMATION
  Report Type: Spontaneous
  Country: US (occurrence: US)
  Receive Date: 20160816
  Receipt Date: 20160914
  Transmission Date: 20161109
  Serious: No
  Sender: FDA-Public Use
  Company Number: US-PFIZER INC-2016385892

PATIENT
  Sex: Female

DRUGS (2)
  1. LYRICA [Suspect]
     Active Substance: PREGABALIN
     Dosage: 50 MG, 2X/DAY (AM + PM)
  2. LYRICA [Suspect]
     Active Substance: PREGABALIN
     Dosage: 75MG AM; 50MG PM; 75MG PM

REACTIONS (5)
  - Paraesthesia [Unknown]
  - Dizziness [Unknown]
  - Hypoaesthesia [Unknown]
  - Feeling drunk [Recovering/Resolving]
  - Condition aggravated [Unknown]
